FAERS Safety Report 15555133 (Version 3)
Quarter: 2018Q4

REPORT INFORMATION
  Report Type: Spontaneous
  Country: SI (occurrence: SI)
  Receive Date: 20181026
  Receipt Date: 20181114
  Transmission Date: 20190205
  Serious: Yes (Hospitalization, Other)
  Sender: FDA-Public Use
  Company Number: SI-AMGEN-SVNSP2018151410

PATIENT
  Age: 81 Year
  Sex: Female
  Weight: 50 kg

DRUGS (4)
  1. CALCIUM CARBONATE. [Concomitant]
     Active Substance: CALCIUM CARBONATE
     Dosage: UNK
  2. PROLIA [Suspect]
     Active Substance: DENOSUMAB
     Indication: OSTEOPOROSIS
     Dosage: UNK
     Route: 065
  3. AMLOPIN [Concomitant]
     Active Substance: AMLODIPINE BESYLATE
     Dosage: UNK
  4. PLIVIT D3 [Concomitant]
     Active Substance: CHOLECALCIFEROL
     Dosage: 10 DROPS PER DAY OR 70 1X PER WEEK

REACTIONS (23)
  - Poisoning [Unknown]
  - Hip fracture [Unknown]
  - Renal impairment [Recovering/Resolving]
  - Feeding disorder [Unknown]
  - Dizziness [Unknown]
  - Abdominal pain [Unknown]
  - Paraesthesia [Not Recovered/Not Resolved]
  - Tooth extraction [Unknown]
  - Suicide attempt [Unknown]
  - Nausea [Unknown]
  - Dental caries [Not Recovered/Not Resolved]
  - Tooth disorder [Unknown]
  - Weight decreased [Unknown]
  - Depression [Unknown]
  - Mobility decreased [Unknown]
  - Feeling abnormal [Unknown]
  - Muscle atrophy [Unknown]
  - Asthenia [Unknown]
  - Malnutrition [Unknown]
  - Muscular weakness [Unknown]
  - Fall [Unknown]
  - Tooth loss [Unknown]
  - Gastrointestinal disorder [Unknown]

NARRATIVE: CASE EVENT DATE: 201510
